FAERS Safety Report 17856535 (Version 1)
Quarter: 2020Q2

REPORT INFORMATION
  Report Type: Spontaneous
  Country: SI (occurrence: SI)
  Receive Date: 20200603
  Receipt Date: 20200603
  Transmission Date: 20200714
  Serious: Yes (Other)
  Sender: FDA-Public Use
  Company Number: SI-BAYER-2020-096819

PATIENT
  Age: 57 Year
  Sex: Male

DRUGS (2)
  1. STIVARGA [Suspect]
     Active Substance: REGORAFENIB
     Indication: RECTAL ADENOCARCINOMA
     Dosage: 120 MG FOR WEEK 2 NAD 3
     Dates: start: 201912, end: 202003
  2. STIVARGA [Suspect]
     Active Substance: REGORAFENIB
     Indication: RECTAL ADENOCARCINOMA
     Dosage: 80 MG FOR 1 WEEK
     Dates: start: 201911

REACTIONS (3)
  - Metastases to lung [None]
  - Metastases to liver [None]
  - Metastases to lymph nodes [None]

NARRATIVE: CASE EVENT DATE: 202003
